FAERS Safety Report 10071612 (Version 2)
Quarter: 2014Q2

REPORT INFORMATION
  Report Type: Report from Study
  Country: ES (occurrence: US)
  Receive Date: 20140410
  Receipt Date: 20140428
  Transmission Date: 20141212
  Serious: Yes (Other)
  Sender: FDA-Public Use
  Company Number: US-MERCK-1404USA005038

PATIENT
  Sex: 0

DRUGS (4)
  1. VICTRELIS [Suspect]
     Indication: HEPATIC FIBROSIS
     Route: 048
  2. RIBAVIRIN [Suspect]
     Indication: HEPATIC FIBROSIS
     Route: 048
  3. PEGINTERFERON ALFA-2A [Suspect]
     Indication: HEPATIC FIBROSIS
  4. TELAPREVIR [Suspect]
     Indication: HEPATIC FIBROSIS

REACTIONS (8)
  - Thrombocytopenia [Unknown]
  - Hepatic failure [Unknown]
  - Infection [Unknown]
  - Insomnia [Unknown]
  - Depression [Unknown]
  - Anaemia [Unknown]
  - Skin reaction [Unknown]
  - Neutropenia [Unknown]
